FAERS Safety Report 19284150 (Version 1)
Quarter: 2021Q2

REPORT INFORMATION
  Report Type: Report from Study
  Country: GB (occurrence: GB)
  Receive Date: 20210521
  Receipt Date: 20210521
  Transmission Date: 20210717
  Serious: Yes (Hospitalization)
  Sender: FDA-Public Use
  Company Number: GB-MYLANLABS-2021M1028907

PATIENT
  Sex: Male

DRUGS (7)
  1. CYTARABINE. [Concomitant]
     Active Substance: CYTARABINE
     Dosage: FLAG?IDA THERAPY (120 MG/M2)
     Route: 065
  2. ETOPOSIDE PHOSPHATE [Concomitant]
     Active Substance: ETOPOSIDE PHOSPHATE
     Indication: ACUTE MYELOID LEUKAEMIA
     Dosage: ADE THERAPY (79.5MG/M2)
     Route: 065
  3. DAUNORUBICIN [Concomitant]
     Active Substance: DAUNORUBICIN
     Indication: ACUTE MYELOID LEUKAEMIA
     Dosage: ADE THERAPY (79.5MG/M2)
     Route: 065
  4. FLUDARABINE [Concomitant]
     Active Substance: FLUDARABINE PHOSPHATE
     Indication: ACUTE MYELOID LEUKAEMIA
     Dosage: FLAG?IDA THERAPY (120 MG/M2)
     Route: 065
  5. TRETINOIN. [Suspect]
     Active Substance: TRETINOIN
     Indication: ACUTE MYELOID LEUKAEMIA
     Route: 065
  6. FLUDARABINE [Concomitant]
     Active Substance: FLUDARABINE PHOSPHATE
     Dosage: FLA THERAPY
     Route: 065
  7. CYTARABINE. [Concomitant]
     Active Substance: CYTARABINE
     Indication: ACUTE MYELOID LEUKAEMIA
     Dosage: ADE THERAPY (79.5MG/M2)
     Route: 065

REACTIONS (3)
  - Idiopathic intracranial hypertension [Unknown]
  - Off label use [Unknown]
  - Nervous system disorder [Unknown]
